FAERS Safety Report 10540531 (Version 1)
Quarter: 2014Q4

REPORT INFORMATION
  Report Type: Spontaneous
  Country: CA (occurrence: None)
  Receive Date: 20141022
  Receipt Date: 20141022
  Transmission Date: 20150529
  Serious: Yes (Other)
  Sender: FDA-Public Use
  Company Number: IPC201410-000542

PATIENT
  Age: 44 Year
  Sex: Female

DRUGS (3)
  1. FEBUXOSTAT. [Suspect]
     Active Substance: FEBUXOSTAT
     Indication: MYOPATHY
  2. ALLOPURINOL. [Suspect]
     Active Substance: ALLOPURINOL
     Indication: MYOPATHY
  3. AZATHIOPRINE. [Suspect]
     Active Substance: AZATHIOPRINE
     Indication: MYOPATHY

REACTIONS (5)
  - Pyrexia [None]
  - Hepatic mass [None]
  - Drug reaction with eosinophilia and systemic symptoms [None]
  - Drug interaction [None]
  - Myositis [None]
